FAERS Safety Report 10102476 (Version 1)
Quarter: 2014Q2

REPORT INFORMATION
  Report Type: Spontaneous
  Country: IT (occurrence: IT)
  Receive Date: 20140424
  Receipt Date: 20140424
  Transmission Date: 20141212
  Serious: Yes (Other)
  Sender: FDA-Public Use
  Company Number: IT-ACTAVIS-2014-07857

PATIENT
  Age: 77 Year
  Sex: Female

DRUGS (1)
  1. MINOXIDIL (AMALLC) [Suspect]
     Indication: ANDROGENETIC ALOPECIA
     Dosage: TWICE DAILY
     Route: 061

REACTIONS (2)
  - Dermatosis [Recovered/Resolved with Sequelae]
  - Application site pustules [Recovered/Resolved with Sequelae]
